FAERS Safety Report 10991774 (Version 1)
Quarter: 2015Q2

REPORT INFORMATION
  Report Type: Spontaneous
  Country: FI (occurrence: FI)
  Receive Date: 20150406
  Receipt Date: 20150406
  Transmission Date: 20150821
  Serious: Yes (Other)
  Sender: FDA-Public Use
  Company Number: CHPA2015FI004432

PATIENT
  Sex: Female

DRUGS (1)
  1. NICOTINELL [Suspect]
     Active Substance: NICOTINE
     Indication: SMOKING CESSATION THERAPY
     Dosage: UNK
     Route: 065

REACTIONS (2)
  - Tongue neoplasm malignant stage unspecified [Not Recovered/Not Resolved]
  - Drug dependence [Not Recovered/Not Resolved]
